FAERS Safety Report 26102439 (Version 1)
Quarter: 2025Q4

REPORT INFORMATION
  Report Type: Spontaneous
  Country: CN (occurrence: CN)
  Receive Date: 20251128
  Receipt Date: 20251128
  Transmission Date: 20260118
  Serious: Yes (Other)
  Sender: PFIZER
  Company Number: CN-PFIZER INC-PV202500138175

PATIENT
  Age: 40 Year
  Sex: Female
  Weight: 58 kg

DRUGS (3)
  1. EPIRUBICIN [Suspect]
     Active Substance: EPIRUBICIN
     Indication: Symptomatic treatment
     Dosage: 105 MG, 1X/DAY
     Route: 041
     Dates: start: 20251016, end: 20251016
  2. DOCETAXEL [Suspect]
     Active Substance: DOCETAXEL
     Indication: Symptomatic treatment
     Dosage: 105 MG, 1X/DAY
     Route: 042
     Dates: start: 20251016, end: 20251016
  3. CYCLOPHOSPHAMIDE [Suspect]
     Active Substance: CYCLOPHOSPHAMIDE
     Indication: Symptomatic treatment
     Dosage: 0.7 G, 1X/DAY
     Route: 042
     Dates: start: 20251016, end: 20251016

REACTIONS (2)
  - Hepatic function abnormal [Recovering/Resolving]
  - Off label use [Unknown]

NARRATIVE: CASE EVENT DATE: 20251016
